FAERS Safety Report 19781073 (Version 3)
Quarter: 2022Q2

REPORT INFORMATION
  Report Type: Spontaneous
  Country: JP (occurrence: JP)
  Receive Date: 20210902
  Receipt Date: 20220530
  Transmission Date: 20220720
  Serious: Yes (Hospitalization, Other)
  Sender: FDA-Public Use
  Company Number: JP-MLMSERVICE-20210816-3045812-1

PATIENT
  Age: 71 Year
  Sex: Male

DRUGS (22)
  1. DOCETAXEL [Suspect]
     Active Substance: DOCETAXEL
     Indication: Oesophageal carcinoma
     Dosage: 70 MG/M2, CYCLIC, EVERY 3 WEEKS ON DAY 1, DCF THERAPY, DAY 5 OF ADMISSION
     Dates: start: 202009, end: 202009
  2. DOCETAXEL [Suspect]
     Active Substance: DOCETAXEL
     Dosage: 70 MG/M2, CYCLIC, EVERY 3 WEEKS, DCF THERAPY, DAY 26 OF ADMISSION
     Dates: start: 2020, end: 2020
  3. DOCETAXEL [Suspect]
     Active Substance: DOCETAXEL
     Dosage: 70 MG/M2, CYCLIC, EVERY 3 WEEKS, DCF THERAPY, DAY 48 OF ADMISSION
     Dates: start: 2020, end: 2020
  4. CISPLATIN [Suspect]
     Active Substance: CISPLATIN
     Indication: Oesophageal carcinoma
     Dosage: 70 MG/M2, CYCLIC, EVERY 3 WEEKS ON DAY 1, DCF THERAPY, DAY 5 OF ADMISSION
     Dates: start: 202009, end: 202009
  5. CISPLATIN [Suspect]
     Active Substance: CISPLATIN
     Dosage: 70 MG/M2, CYCLIC, EVERY 3 WEEKS, DCF THERAPY, DAY 26 OF ADMISSION
     Dates: start: 2020, end: 2020
  6. CISPLATIN [Suspect]
     Active Substance: CISPLATIN
     Dosage: 70 MG/M2, CYCLIC, EVERY 3 WEEKS, DCF THERAPY, DAY 48 OF ADMISSION
     Dates: start: 2020, end: 2020
  7. FLUOROURACIL [Suspect]
     Active Substance: FLUOROURACIL
     Indication: Oesophageal carcinoma
     Dosage: 750 MG/M2, CYCLIC, EVERY 3 WEEKS FROM DAYS 1-5, DCF THERAPY, DAY 5 OF ADMISSION
     Dates: start: 202009, end: 2020
  8. FLUOROURACIL [Suspect]
     Active Substance: FLUOROURACIL
     Dosage: 750 MG/M2, CYCLIC, EVERY 3 WEEKS, DCF THERAPY, FROM DAY 26 OF ADMISSION
     Dates: start: 2020, end: 2020
  9. FLUOROURACIL [Suspect]
     Active Substance: FLUOROURACIL
     Dosage: 750 MG/M2, CYCLIC, EVERY 3 WEEKS, DCF THERAPY, FROM DAY 48 OF ADMISSION
     Dates: start: 2020, end: 2020
  10. MANNITOL [Concomitant]
     Active Substance: MANNITOL
     Dosage: 60 G, 1X/DAY
  11. DOMPERIDONE [Concomitant]
     Active Substance: DOMPERIDONE
     Dosage: 30 MG, 1X/DAY
  12. HEPARIN SODIUM [Concomitant]
     Active Substance: HEPARIN SODIUM
     Dosage: 10000 UNITS/DAY
  13. PEGFILGRASTIM [Concomitant]
     Active Substance: PEGFILGRASTIM
     Dosage: 3.6 MG/TIME
  14. CEFEPIME [Concomitant]
     Active Substance: CEFEPIME HYDROCHLORIDE
     Dosage: 2 G, 1X/DAY
  15. MAGNESIUM SULFATE HEPTAHYDRATE [Concomitant]
     Active Substance: MAGNESIUM SULFATE HEPTAHYDRATE
     Dosage: 20 MEQ, 1X/DAY
  16. PALONOSETRON HYDROCHLORIDE [Concomitant]
     Active Substance: PALONOSETRON HYDROCHLORIDE
     Dosage: 0.75 MG, 1X/DAY
  17. RABEPRAZOLE [Concomitant]
     Active Substance: RABEPRAZOLE
     Dosage: 10 MG, 1X/DAY
  18. DEXAMETHASONE SODIUM PHOSPHATE [Concomitant]
     Active Substance: DEXAMETHASONE SODIUM PHOSPHATE
     Dosage: 9.9 MG, 1X/DAY, ON DAY 1
     Dates: start: 202009, end: 202009
  19. DEXAMETHASONE SODIUM PHOSPHATE [Concomitant]
     Active Substance: DEXAMETHASONE SODIUM PHOSPHATE
     Dosage: 3.3 MG, 1X/DAY, DAY 2-4
     Dates: start: 2020, end: 2020
  20. HERBALS [Concomitant]
     Active Substance: HERBALS
     Dosage: 7.5 G, 1X/DAY
  21. APREPITANT [Concomitant]
     Active Substance: APREPITANT
     Dosage: 125 MG, 1X/DAY, ON DAY 1
     Dates: start: 202009, end: 202009
  22. APREPITANT [Concomitant]
     Active Substance: APREPITANT
     Dosage: 80 MG, 1X/DAY, DAY 2-5
     Dates: start: 2020, end: 2020

REACTIONS (2)
  - Inappropriate antidiuretic hormone secretion [Recovering/Resolving]
  - Hyponatraemia [Recovering/Resolving]

NARRATIVE: CASE EVENT DATE: 20200101
